FAERS Safety Report 8177392-3 (Version None)
Quarter: 2012Q1

REPORT INFORMATION
  Report Type: 
  Country: None (occurrence: None)
  Receive Date: 20120301
  Receipt Date: 20120223
  Transmission Date: 20120608
  Serious: Yes (Other)
  Sender: FDA-Public Use
  Company Number: AE-ROCHE-1044490

PATIENT
  Sex: Female

DRUGS (7)
  1. ATORVASTATIN [Suspect]
     Indication: PRODUCT USED FOR UNKNOWN INDICATION
     Route: 065
  2. ALBUTEROL [Concomitant]
  3. DESLORATADINE [Concomitant]
  4. PANTOPRAZOLE [Concomitant]
  5. FLUTICASONE PROPIONATE/SALMETEROL [Concomitant]
  6. XOLAIR [Suspect]
     Indication: ASTHMA
     Route: 058
     Dates: start: 20100601, end: 20110301
  7. MONTELUKAST [Concomitant]

REACTIONS (1)
  - ANAPHYLACTIC SHOCK [None]
